FAERS Safety Report 13836441 (Version 1)
Quarter: 2017Q3

REPORT INFORMATION
  Report Type: Report from Study
  Country: GB (occurrence: GB)
  Receive Date: 20170804
  Receipt Date: 20170804
  Transmission Date: 20171127
  Serious: Yes (Other)
  Sender: FDA-Public Use
  Company Number: PHFR2017GB006167

PATIENT
  Sex: Female

DRUGS (1)
  1. DUOTRAV BAC-FREE [Suspect]
     Active Substance: TIMOLOL\TRAVOPROST
     Indication: GLAUCOMA
     Route: 065

REACTIONS (5)
  - Blepharitis [Unknown]
  - Dyspnoea [Unknown]
  - Osteochondrosis [Unknown]
  - Feeling abnormal [Unknown]
  - Drug intolerance [Unknown]
